FAERS Safety Report 25152203 (Version 2)
Quarter: 2025Q2

REPORT INFORMATION
  Report Type: Report from Study
  Country: CA (occurrence: CA)
  Receive Date: 20250402
  Receipt Date: 20250403
  Transmission Date: 20250717
  Serious: Yes (Other)
  Sender: COVIS PHARMA
  Company Number: CA-AstraZeneca-2020SF40796

PATIENT
  Sex: Male

DRUGS (7)
  1. CICLESONIDE [Suspect]
     Active Substance: CICLESONIDE
     Indication: Product used for unknown indication
     Dosage: 2 DOSAGE FORM, BID
  2. FLUTICASONE PROPIONATE [Suspect]
     Active Substance: FLUTICASONE PROPIONATE
     Indication: Product used for unknown indication
     Route: 065
  3. PREDNISONE [Suspect]
     Active Substance: PREDNISONE
     Indication: Asthma
     Dosage: 1 DOSAGE FORM, QD
     Route: 065
  4. ALBUTEROL SULFATE [Suspect]
     Active Substance: ALBUTEROL SULFATE
     Indication: Asthma
     Route: 065
  5. SINGULAIR [Suspect]
     Active Substance: MONTELUKAST SODIUM
     Indication: Product used for unknown indication
     Route: 065
  6. SPIRIVA RESPIMAT [Suspect]
     Active Substance: TIOTROPIUM BROMIDE
     Indication: Product used for unknown indication
     Dosage: 5G/DOSE
     Route: 065
  7. ZENHALE [Suspect]
     Active Substance: FORMOTEROL FUMARATE\MOMETASONE FUROATE
     Indication: Product used for unknown indication
     Dosage: 2 DOSAGE FORM, BID
     Route: 065

REACTIONS (10)
  - Asthma [Unknown]
  - Dyspnoea [Unknown]
  - Haematocrit increased [Unknown]
  - Haemoglobin increased [Unknown]
  - Loss of personal independence in daily activities [Unknown]
  - Red blood cell count increased [Unknown]
  - Sleep disorder due to a general medical condition [Unknown]
  - Social problem [Unknown]
  - Wheezing [Unknown]
  - Therapeutic product effect incomplete [Unknown]
